FAERS Safety Report 12639878 (Version 2)
Quarter: 2016Q3

REPORT INFORMATION
  Report Type: Spontaneous
  Country: US (occurrence: US)
  Receive Date: 20160810
  Receipt Date: 20160823
  Transmission Date: 20161109
  Serious: Yes (Congenital Anomaly, Other)
  Sender: FDA-Public Use
  Company Number: PHHY2015US131781

PATIENT
  Sex: Male

DRUGS (2)
  1. ONDANSETRON [Suspect]
     Active Substance: ONDANSETRON
     Indication: FOETAL EXPOSURE DURING PREGNANCY
     Dosage: UNK
     Route: 064
  2. ZOFRAN [Suspect]
     Active Substance: ONDANSETRON HYDROCHLORIDE
     Indication: FOETAL EXPOSURE DURING PREGNANCY
     Dosage: UNK
     Route: 064

REACTIONS (11)
  - Cleft lip and palate [Unknown]
  - Nose deformity [Unknown]
  - Secretion discharge [Unknown]
  - Foetal exposure during pregnancy [Unknown]
  - Ear malformation [Unknown]
  - Dyspnoea [Unknown]
  - Craniofacial deformity [Unknown]
  - Breath odour [Unknown]
  - Emotional distress [Unknown]
  - Pain [Unknown]
  - Scar [Unknown]
